FAERS Safety Report 25638152 (Version 1)
Quarter: 2025Q3

REPORT INFORMATION
  Report Type: Spontaneous
  Country: US (occurrence: US)
  Receive Date: 20250804
  Receipt Date: 20250804
  Transmission Date: 20251021
  Serious: No
  Sender: GLAXOSMITHKLINE
  Company Number: US-GSK-US2025096218

PATIENT
  Sex: Female

DRUGS (4)
  1. NUCALA [Suspect]
     Active Substance: MEPOLIZUMAB
     Indication: Asthma
  2. BREO ELLIPTA [Concomitant]
     Active Substance: FLUTICASONE FUROATE\VILANTEROL TRIFENATATE
     Indication: Asthma
  3. ALBUTEROL [Concomitant]
     Active Substance: ALBUTEROL
     Indication: Asthma
  4. MONTELUKAST [Concomitant]
     Active Substance: MONTELUKAST
     Indication: Asthma

REACTIONS (1)
  - Therapeutic response shortened [Unknown]
